FAERS Safety Report 9299310 (Version 1)
Quarter: 2013Q2

REPORT INFORMATION
  Report Type: Spontaneous
  Country: IT (occurrence: IT)
  Receive Date: 20130520
  Receipt Date: 20130520
  Transmission Date: 20140414
  Serious: Yes (Hospitalization)
  Sender: FDA-Public Use
  Company Number: PHHY2013IT050139

PATIENT
  Sex: Female

DRUGS (8)
  1. DOXORUBICIN [Suspect]
     Indication: HODGKIN^S DISEASE
     Dosage: 50 MG, CYCLIC
     Dates: start: 20130305, end: 20130506
  2. CHLORAMBUCIL [Suspect]
     Indication: HODGKIN^S DISEASE
     Dosage: 10 MG, CYCLIC
     Route: 048
     Dates: start: 20130305, end: 20130506
  3. PROCARBAZINE [Suspect]
     Indication: HODGKIN^S DISEASE
     Dosage: 150 MG, CYCLIC
     Route: 048
     Dates: start: 20130305, end: 20130506
  4. VINBLASTINE [Suspect]
     Indication: HODGKIN^S DISEASE
     Dosage: 10 MG, UNK
     Dates: start: 20130305, end: 20130506
  5. PREDNISONE [Suspect]
     Indication: HODGKIN^S DISEASE
     Dosage: 50 MG, CYCLIC
     Route: 048
     Dates: start: 20130305, end: 20130506
  6. VINCRISTINE [Suspect]
     Indication: HODGKIN^S DISEASE
     Dosage: 1 MG, CYCLIC
     Dates: start: 20130305, end: 20130506
  7. BLEOMYCIN [Suspect]
     Indication: HODGKIN^S DISEASE
     Dosage: 12 MG, UNK
     Dates: start: 20130305, end: 20130506
  8. ETOPOSIDE [Suspect]
     Indication: HODGKIN^S DISEASE
     Dosage: 165 MG, CYCLIC
     Route: 048
     Dates: start: 20130305, end: 20130506

REACTIONS (2)
  - Hyperglycaemia [Recovered/Resolved with Sequelae]
  - Anaemia [Recovered/Resolved with Sequelae]
